FAERS Safety Report 6645256-X (Version None)
Quarter: 2010Q1

REPORT INFORMATION
  Report Type: 
  Country: None (occurrence: None)
  Receive Date: 20100322
  Receipt Date: 20100311
  Transmission Date: 20100710
  Serious: Yes (Other)
  Sender: FDA-Public Use
  Company Number: PHHY2010MX15802

PATIENT
  Age: 40 Year
  Sex: Male

DRUGS (1)
  1. MYCOPHENOLATE MOFETIL [Suspect]
     Dosage: 360 MG, UNK

REACTIONS (3)
  - DIARRHOEA [None]
  - GASTRIC DISORDER [None]
  - TRANSPLANT REJECTION [None]
